FAERS Safety Report 8799915 (Version 1)
Quarter: 2012Q4

REPORT INFORMATION
  Report Type: Spontaneous
  Country: IT (occurrence: None)
  Receive Date: 20120917
  Receipt Date: 20120917
  Transmission Date: 20130627
  Serious: Yes (Other)
  Sender: FDA-Public Use
  Company Number: DSA_59445_2012

PATIENT

DRUGS (8)
  1. FLUOROURACIL (FLUOROURACIL) [Suspect]
     Indication: COLORECTAL CANCER METASTATIC
     Dosage: 400 mg/m2/day (Every other week) Intravenous bolus),
     Route: 040
  2. FLUOROURACIL (FLUOROURACIL) [Suspect]
     Indication: COLORECTAL CANCER METASTATIC
     Dosage: 600 mg/m2/day (Every other week) intraveno9us (not otherwise specified))
     Route: 042
  3. FLUOROURACIL (FLUOROURACIL) [Suspect]
     Indication: COLORECTAL CANCER METASTATIC
     Dosage: (1.5 g/m2 (Every other week) Intravenous (not otherwise specified))
  4. OXALIPLATIN (OXALIPLATIN) [Suspect]
     Indication: COLORECTAL CANCER METASTATIC
     Dosage: 85 mg/m2/day (Every other week) intravenous (not otherwise specified))
     Route: 042
  5. OXALIPLATIN (OXALIPLATIN) [Suspect]
     Indication: COLORECTAL CANCER METASTATIC
     Dosage: (500 mg/m2 (Every other week) intravenous (Not otherwise specified))
  6. LEUCOVORIN [Suspect]
     Indication: COLORECTAL CANCER METASTATIC
     Dosage: 85 mg/m2/day (Every other week) intravenous (not otherwise specified))
     Route: 042
  7. LEUCOVORIN [Suspect]
     Indication: COLORECTAL CANCER METASTATIC
     Dosage: (500 mg/m2 (Every other week) Intravenoust (not otherwise specified))
     Route: 042
  8. ANTIEMETICS AND ANTINAUSEANTS [Concomitant]

REACTIONS (1)
  - Thrombocytopenia [None]
